FAERS Safety Report 12484449 (Version 1)
Quarter: 2016Q2

REPORT INFORMATION
  Report Type: Spontaneous
  Country: FR (occurrence: FR)
  Receive Date: 20160621
  Receipt Date: 20160621
  Transmission Date: 20160815
  Serious: Yes (Hospitalization)
  Sender: FDA-Public Use
  Company Number: FR-PFIZER INC-2016306853

PATIENT
  Age: 89 Year
  Sex: Male

DRUGS (6)
  1. MOVICOL [Concomitant]
     Active Substance: POLYETHYLENE GLYCOL 3350\POTASSIUM CHLORIDE\SODIUM BICARBONATE\SODIUM CHLORIDE
     Dosage: UNK
  2. OFLOCET [Suspect]
     Active Substance: OFLOXACIN
     Indication: INFECTION
     Dosage: 200 MG, 2X/DAY
     Route: 048
     Dates: start: 20160415, end: 20160422
  3. GLICLAZIDE [Suspect]
     Active Substance: GLICLAZIDE
     Dosage: 30 MG, 2X/DAY
     Route: 065
     Dates: end: 20160420
  4. RAMIPRIL. [Suspect]
     Active Substance: RAMIPRIL
     Dosage: 5 MG, DAILY
     Route: 065
     Dates: end: 20160420
  5. ATENOLOL. [Concomitant]
     Active Substance: ATENOLOL
     Dosage: UNK
  6. CLOPIDOGREL [Concomitant]
     Active Substance: CLOPIDOGREL BISULFATE
     Dosage: UNK

REACTIONS (5)
  - Diarrhoea [Unknown]
  - Hyperkalaemia [Recovered/Resolved]
  - Metabolic acidosis [Recovered/Resolved]
  - Acute kidney injury [Recovered/Resolved]
  - Nausea [Unknown]

NARRATIVE: CASE EVENT DATE: 20160420
